FAERS Safety Report 23987451 (Version 1)
Quarter: 2024Q2

REPORT INFORMATION
  Report Type: Spontaneous
  Country: BR (occurrence: BR)
  Receive Date: 20240618
  Receipt Date: 20240618
  Transmission Date: 20240716
  Serious: No
  Sender: FDA-Public Use
  Company Number: BR-WT-2024-AMR-063965

PATIENT
  Age: 71 Year
  Sex: Female

DRUGS (2)
  1. AVODART [Suspect]
     Active Substance: DUTASTERIDE
     Indication: Alopecia
     Dosage: 0.5 MG, 1 DF, QD
     Route: 065
     Dates: start: 202404
  2. MINOXIDIL [Concomitant]
     Active Substance: MINOXIDIL
     Route: 065

REACTIONS (3)
  - Product use issue [Unknown]
  - Product prescribing issue [Unknown]
  - Drug effective for unapproved indication [Unknown]

NARRATIVE: CASE EVENT DATE: 20240401
